FAERS Safety Report 13233283 (Version 1)
Quarter: 2017Q1

REPORT INFORMATION
  Report Type: Spontaneous
  Country: GR (occurrence: GR)
  Receive Date: 20170215
  Receipt Date: 20170215
  Transmission Date: 20170428
  Serious: Yes (Hospitalization)
  Sender: FDA-Public Use
  Company Number: GR-ROCHE-1893973

PATIENT
  Age: 75 Year
  Sex: Female

DRUGS (1)
  1. XOLAIR [Suspect]
     Active Substance: OMALIZUMAB
     Indication: ASTHMA
     Route: 065
     Dates: end: 201612

REACTIONS (4)
  - Sinusitis [Unknown]
  - Agitation [Unknown]
  - Pyrexia [Unknown]
  - Aggression [Unknown]
